FAERS Safety Report 5355281-7 (Version None)
Quarter: 2007Q2

REPORT INFORMATION
  Report Type: 
  Country: None (occurrence: None)
  Receive Date: 20070611
  Receipt Date: 20070531
  Transmission Date: 20071010
  Serious: Yes (Other)
  Sender: FDA-Public Use
  Company Number: 2007SP009634

PATIENT
  Age: 55 Year
  Sex: Male

DRUGS (2)
  1. LONAFARNIB (S-P) [Suspect]
     Indication: MALIGNANT GLIOMA
     Dosage: PO
     Route: 048
  2. TEMOZOLOMIDE [Suspect]
     Indication: MALIGNANT GLIOMA
     Dosage: PO
     Route: 048

REACTIONS (1)
  - ALANINE AMINOTRANSFERASE INCREASED [None]
